FAERS Safety Report 20231956 (Version 7)
Quarter: 2022Q3

REPORT INFORMATION
  Report Type: Spontaneous
  Country: HU (occurrence: HU)
  Receive Date: 20211227
  Receipt Date: 20220819
  Transmission Date: 20221026
  Serious: Yes (Life-Threatening, Hospitalization, Other)
  Sender: FDA-Public Use
  Company Number: HU-Accord-248044

PATIENT
  Age: 45 Year
  Sex: Male
  Weight: 92 kg

DRUGS (16)
  1. GEMCITABINE HYDROCHLORIDE [Suspect]
     Active Substance: GEMCITABINE HYDROCHLORIDE
     Indication: Diffuse large B-cell lymphoma
     Dosage: 1Q2W
     Dates: start: 20211208, end: 20211208
  2. OXALIPLATIN [Suspect]
     Active Substance: OXALIPLATIN
     Indication: Diffuse large B-cell lymphoma
     Dosage: 1Q2W
     Route: 042
     Dates: start: 20211208, end: 20211208
  3. RITUXIMAB [Suspect]
     Active Substance: RITUXIMAB
     Indication: Diffuse large B-cell lymphoma
     Dosage: 1Q2W
     Dates: start: 20211208, end: 20211208
  4. RASBURICASE [Concomitant]
     Active Substance: RASBURICASE
     Dates: start: 20211208, end: 20211208
  5. FAMOTIDINE [Concomitant]
     Active Substance: FAMOTIDINE
     Dates: start: 202102
  6. ASPIRIN [Concomitant]
     Active Substance: ASPIRIN
     Dates: start: 202105, end: 20211213
  7. ATORVASTATIN [Concomitant]
     Active Substance: ATORVASTATIN
     Dates: start: 202105
  8. OXYCODONE HYDROCHLORIDE [Concomitant]
     Active Substance: OXYCODONE HYDROCHLORIDE
     Dates: start: 202110
  9. NALOXONE HYDROCHLORIDE [Concomitant]
     Active Substance: NALOXONE HYDROCHLORIDE
     Dates: start: 202110
  10. PANTOPRAZOLE SODIUM [Concomitant]
     Active Substance: PANTOPRAZOLE SODIUM
     Dates: start: 20211208
  11. VITAMIN D3 [Concomitant]
     Active Substance: CHOLECALCIFEROL
     Dates: start: 202109
  12. FILGRASTIM [Concomitant]
     Active Substance: FILGRASTIM
     Dates: start: 20211213
  13. ACYCLOVIR [Concomitant]
     Active Substance: ACYCLOVIR
     Dates: start: 20211213
  14. SULFAMETHOXAZOLE\TRIMETHOPRIM [Concomitant]
     Active Substance: SULFAMETHOXAZOLE\TRIMETHOPRIM
     Dates: start: 20211213
  15. CONTROLOC [Concomitant]
     Active Substance: PANTOPRAZOLE SODIUM
     Dates: start: 20211220, end: 20211223
  16. DEXAMETHASONE [Concomitant]
     Active Substance: DEXAMETHASONE
     Dates: start: 20211220, end: 20211227

REACTIONS (4)
  - Vomiting [Recovered/Resolved]
  - Hypercalcaemia [Recovered/Resolved]
  - Off label use [Unknown]
  - Blood uric acid increased [Recovered/Resolved]

NARRATIVE: CASE EVENT DATE: 20211208
